FAERS Safety Report 4886733-1 (Version None)
Quarter: 2006Q1

REPORT INFORMATION
  Report Type: 
  Country: None (occurrence: None)
  Receive Date: 20060119
  Receipt Date: 20051215
  Transmission Date: 20060701
  Serious: Yes (Other)
  Sender: FDA-Public Use
  Company Number: 221090

PATIENT
  Age: 68 Year
  Sex: Female
  Weight: 67 kg

DRUGS (4)
  1. AVASTIN [Suspect]
     Indication: METASTATIC RENAL CELL CARCINOMA
     Dosage: 500 MG, Q2W, INTRAVENOUS
     Route: 042
     Dates: start: 20050712, end: 20050817
  2. CAPECITABINE (CAPECITABINE) [Concomitant]
  3. GEMCITABINE (GEMCITABINE HYDROCHLORIDE) [Concomitant]
  4. FLUOROURACIL [Concomitant]

REACTIONS (2)
  - BLOOD PRESSURE INCREASED [None]
  - CHEST PAIN [None]
